FAERS Safety Report 10149844 (Version 1)
Quarter: 2014Q2

REPORT INFORMATION
  Report Type: Spontaneous
  Country: US (occurrence: None)
  Receive Date: 20140501
  Receipt Date: 20140501
  Transmission Date: 20141212
  Serious: Yes (Life-Threatening, Hospitalization, Other)
  Sender: FDA-Public Use
  Company Number: None

PATIENT
  Age: 57 Year
  Sex: Female
  Weight: 62.6 kg

DRUGS (4)
  1. METRONIDAZOLE [Suspect]
     Indication: DIVERTICULITIS
     Dosage: 1 TABLET
     Route: 048
     Dates: start: 20140405, end: 20140407
  2. LEVOTHYROXINE [Concomitant]
  3. CALCIUM PLUS VITAMIN D (CON.) [Concomitant]
  4. IBUPROFEN [Concomitant]

REACTIONS (7)
  - Nausea [None]
  - Dizziness [None]
  - Tinnitus [None]
  - Headache [None]
  - Visual impairment [None]
  - Hypoaesthesia [None]
  - Economic problem [None]
